FAERS Safety Report 24682030 (Version 1)
Quarter: 2024Q4

REPORT INFORMATION
  Report Type: Spontaneous
  Country: JP (occurrence: JP)
  Receive Date: 20241130
  Receipt Date: 20241130
  Transmission Date: 20250115
  Serious: Yes (Hospitalization, Other)
  Sender: INVENTIA HEALTHCARE
  Company Number: JP-Inventia-000759

PATIENT
  Age: 71 Year
  Sex: Male
  Weight: 69.1 kg

DRUGS (8)
  1. DULOXETINE [Suspect]
     Active Substance: DULOXETINE
     Indication: Neuralgia
  2. ACETAMINOPHEN [Concomitant]
     Active Substance: ACETAMINOPHEN
     Indication: Back pain
  3. IMMUNOGLOBULIN [Concomitant]
     Route: 042
  4. PRASUGREL [Concomitant]
     Active Substance: PRASUGREL
  5. VONOPRAZAN [Concomitant]
     Active Substance: VONOPRAZAN
  6. ROSUVASTATIN [Concomitant]
     Active Substance: ROSUVASTATIN
  7. BENIDIPINE [Concomitant]
     Active Substance: BENIDIPINE
  8. SILODOSIN [Concomitant]
     Active Substance: SILODOSIN

REACTIONS (2)
  - Inappropriate antidiuretic hormone secretion [Recovered/Resolved]
  - Hypouricaemia [Recovered/Resolved]
